FAERS Safety Report 8707987 (Version 2)
Quarter: 2012Q4

REPORT INFORMATION
  Report Type: Spontaneous
  Country: GB (occurrence: None)
  Receive Date: 20120719
  Receipt Date: 20120816
  Transmission Date: 20130627
  Serious: Yes (Other)
  Sender: FDA-Public Use
  Company Number: 2012032883

PATIENT
  Age: 69 Year
  Sex: Male

DRUGS (2)
  1. HIZENTRA [Suspect]
     Indication: MULTIFOCAL MOTOR NEUROPATHY
     Dosage: 80 ML 1X/WEEK
  2. UNSPECIFIED INGREDIENT [Suspect]

REACTIONS (3)
  - Hemiparesis [None]
  - Asthenia [None]
  - Post procedural complication [None]
